FAERS Safety Report 6175704-3 (Version None)
Quarter: 2009Q2

REPORT INFORMATION
  Report Type: 
  Country: None (occurrence: None)
  Receive Date: 20090501
  Receipt Date: 20090424
  Transmission Date: 20091009
  Serious: Yes (Other)
  Sender: FDA-Public Use
  Company Number: US-SOLVAY-00209002313

PATIENT
  Age: 74 Year
  Sex: Male
  Weight: 81.818 kg

DRUGS (5)
  1. UNIDENTIFIED OTHER MEDICATIONS [Concomitant]
     Indication: DRUG USE FOR UNKNOWN INDICATION
     Dosage: DAILY DOSE:  UNKNOWN
     Route: 065
  2. ANDROGEL [Suspect]
     Indication: BLOOD TESTOSTERONE DECREASED
     Dosage: DAILY DOSE: 5 GRAM(S)
     Route: 062
     Dates: start: 20040101
  3. ANDROGEL [Suspect]
     Dosage: DAILY DOSE: 10 GRAM(S)
     Route: 065
  4. ANDROGEL [Suspect]
     Dosage: DAILY DOSE: 15 GRAM(S)
     Route: 062
     Dates: end: 20081001
  5. ANDROGEL [Suspect]
     Dosage: DAILY DOSE: 20 GRAM(S)
     Route: 062
     Dates: start: 20081001

REACTIONS (4)
  - APPLICATION SITE IRRITATION [None]
  - APPLICATION SITE RASH [None]
  - HIGH DENSITY LIPOPROTEIN DECREASED [None]
  - RENAL DISORDER [None]
